FAERS Safety Report 18369983 (Version 1)
Quarter: 2020Q4

REPORT INFORMATION
  Report Type: Spontaneous
  Country: US (occurrence: US)
  Receive Date: 20201012
  Receipt Date: 20201012
  Transmission Date: 20210114
  Serious: No
  Sender: FDA-Public Use
  Company Number: US-BAUSCH-BL-2020-027652

PATIENT
  Age: 53 Year
  Sex: Male
  Weight: 77.18 kg

DRUGS (1)
  1. LUMIFY [Suspect]
     Active Substance: BRIMONIDINE TARTRATE
     Indication: OCULAR HYPERAEMIA
     Dosage: ONE DROP IN EACH EYE AS NEEDED?APPROXIMATELY 1.5 MONTHS AGO TO ONE WEEK AGO
     Route: 047
     Dates: start: 202008, end: 202009

REACTIONS (4)
  - Arthralgia [Unknown]
  - Paraesthesia [Not Recovered/Not Resolved]
  - Skin laceration [Not Recovered/Not Resolved]
  - Foreign body in skin or subcutaneous tissue [Unknown]

NARRATIVE: CASE EVENT DATE: 2020
